FAERS Safety Report 7899840-6 (Version None)
Quarter: 2011Q4

REPORT INFORMATION
  Report Type: 
  Country: None (occurrence: None)
  Receive Date: 20111107
  Receipt Date: 20110924
  Transmission Date: 20120403
  Serious: Yes (Other)
  Sender: FDA-Public Use
  Company Number: US-AMGEN-USASP2011031552

PATIENT
  Age: 64 Year
  Sex: Female

DRUGS (3)
  1. ENBREL [Suspect]
     Dosage: UNK
  2. ENBREL [Suspect]
     Indication: RHEUMATOID ARTHRITIS
     Dosage: 50 MG, QWK
     Dates: start: 20030903, end: 20110910
  3. PREDNISONE [Concomitant]

REACTIONS (6)
  - TEMPOROMANDIBULAR JOINT SYNDROME [None]
  - APHTHOUS STOMATITIS [None]
  - SINUSITIS [None]
  - SINUS POLYP [None]
  - ANXIETY [None]
  - RHEUMATOID ARTHRITIS [None]
